FAERS Safety Report 8416692-6 (Version None)
Quarter: 2012Q2

REPORT INFORMATION
  Report Type: 
  Country: None (occurrence: None)
  Receive Date: 20120606
  Receipt Date: 20120531
  Transmission Date: 20120825
  Serious: No
  Sender: FDA-Public Use
  Company Number: PHHY2012JP040712

PATIENT
  Age: 85 Year
  Sex: Male

DRUGS (4)
  1. TEGRETOL [Suspect]
     Indication: TRIGEMINAL NEURALGIA
     Dosage: 200 MG, DAILY
     Route: 048
     Dates: start: 20100311, end: 20110307
  2. PAXIL [Suspect]
     Dosage: 30 MG, DAILY
     Route: 048
     Dates: start: 20100311
  3. HYPNOTICS [Concomitant]
     Indication: INSOMNIA
  4. ZOLPIDEM [Suspect]
     Dosage: 5 MG, DAILY
     Route: 048
     Dates: start: 20100311

REACTIONS (3)
  - FALL [None]
  - JOINT INJURY [None]
  - SOMNOLENCE [None]
